FAERS Safety Report 5072510-8 (Version None)
Quarter: 2006Q3

REPORT INFORMATION
  Report Type: 
  Country: None (occurrence: None)
  Receive Date: 20060807
  Receipt Date: 20060608
  Transmission Date: 20061208
  Serious: Yes (Hospitalization)
  Sender: FDA-Public Use
  Company Number: IE-MERCK-0606GBR00030

PATIENT
  Sex: Female

DRUGS (2)
  1. ZETIA [Suspect]
     Indication: BLOOD CHOLESTEROL INCREASED
     Route: 048
  2. STATIN (UNSPECIFIED) [Concomitant]
     Route: 065

REACTIONS (1)
  - LIVER FUNCTION TEST ABNORMAL [None]
